FAERS Safety Report 23589629 (Version 1)
Quarter: 2024Q1

REPORT INFORMATION
  Report Type: Spontaneous
  Country: FR (occurrence: FR)
  Receive Date: 20240304
  Receipt Date: 20240304
  Transmission Date: 20240409
  Serious: Yes (Life-Threatening, Other)
  Sender: FDA-Public Use
  Company Number: None

PATIENT
  Age: 42 Year
  Sex: Female

DRUGS (3)
  1. HERBALS\METHYL SALICYLATE [Suspect]
     Active Substance: HERBALS\METHYL SALICYLATE
     Indication: Migraine
     Dosage: UNK
     Route: 003
     Dates: start: 20231211, end: 20231225
  2. IBUPROFEN [Suspect]
     Active Substance: IBUPROFEN
     Indication: Migraine
     Dosage: UNK
     Route: 048
     Dates: start: 20231211, end: 20231225
  3. ACETAMINOPHEN\BELLADONNA LEAF\CAFFEINE\OPIUM [Suspect]
     Active Substance: ACETAMINOPHEN\BELLADONNA LEAF\CAFFEINE\OPIUM
     Indication: Migraine
     Dosage: UNK
     Route: 048
     Dates: start: 20231211, end: 20231225

REACTIONS (3)
  - Renal failure [Recovered/Resolved]
  - Hallucinations, mixed [Recovering/Resolving]
  - Disorientation [Recovered/Resolved]

NARRATIVE: CASE EVENT DATE: 20231224
